FAERS Safety Report 17034170 (Version 2)
Quarter: 2020Q1

REPORT INFORMATION
  Report Type: Report from Study
  Country: None (occurrence: US)
  Receive Date: 20191114
  Receipt Date: 20200109
  Transmission Date: 20200409
  Serious: Yes (Hospitalization)
  Sender: FDA-Public Use
  Company Number: US-ABBVIE-19K-163-2997500-00

PATIENT
  Sex: Male

DRUGS (2)
  1. HUMIRA [Suspect]
     Active Substance: ADALIMUMAB
     Route: 058
  2. HUMIRA [Suspect]
     Active Substance: ADALIMUMAB
     Indication: ANKYLOSING SPONDYLITIS
     Route: 058

REACTIONS (13)
  - Back disorder [Unknown]
  - Stress [Unknown]
  - Infection [Unknown]
  - Glaucoma [Unknown]
  - Blood potassium decreased [Unknown]
  - Respiratory failure [Unknown]
  - Pneumonia [Unknown]
  - Hypertension [Unknown]
  - Cardiomegaly [Unknown]
  - Fatigue [Unknown]
  - Malaise [Unknown]
  - Urinary tract infection [Unknown]
  - Respiratory rate decreased [Unknown]
